FAERS Safety Report 4337311-4 (Version None)
Quarter: 2004Q2

REPORT INFORMATION
  Report Type: 
  Country: None (occurrence: None)
  Receive Date: 20040406
  Receipt Date: 20031204
  Transmission Date: 20050107
  Serious: Yes (Other)
  Sender: FDA-Public Use
  Company Number: DSA_70170_2003

PATIENT
  Sex: Female

DRUGS (1)
  1. MVI-12 (UNIT VIAL) [Suspect]
     Dosage: 10 ML DAILY IV
     Route: 042
     Dates: start: 20031203, end: 20031203

REACTIONS (9)
  - ANAPHYLACTOID REACTION [None]
  - DIZZINESS [None]
  - DYSPNOEA [None]
  - EYE SWELLING [None]
  - MALAISE [None]
  - OEDEMA PERIPHERAL [None]
  - OROPHARYNGEAL SWELLING [None]
  - SWELLING FACE [None]
  - TINNITUS [None]
